FAERS Safety Report 7991451-7 (Version None)
Quarter: 2011Q4

REPORT INFORMATION
  Report Type: 
  Country: None (occurrence: None)
  Receive Date: 20111219
  Receipt Date: 20111216
  Transmission Date: 20120403
  Serious: Yes (Other)
  Sender: FDA-Public Use
  Company Number: US-BAYER-2011-121468

PATIENT
  Sex: Female

DRUGS (1)
  1. YASMIN [Suspect]
     Dosage: UNK
     Dates: start: 20040101, end: 20080801

REACTIONS (7)
  - GALLBLADDER DISORDER [None]
  - ANHEDONIA [None]
  - INJURY [None]
  - PAIN [None]
  - ANXIETY [None]
  - POST CHOLECYSTECTOMY SYNDROME [None]
  - PSYCHOLOGICAL TRAUMA [None]
